FAERS Safety Report 6439585-2 (Version None)
Quarter: 2009Q4

REPORT INFORMATION
  Report Type: 
  Country: None (occurrence: None)
  Receive Date: 20091113
  Receipt Date: 20091104
  Transmission Date: 20100525
  Serious: Yes (Life-Threatening, Hospitalization, Disabling)
  Sender: FDA-Public Use
  Company Number: B0601758A

PATIENT
  Age: 58 Year
  Sex: Female
  Weight: 56 kg

DRUGS (10)
  1. ARIXTRA [Suspect]
     Indication: DRUG USE FOR UNKNOWN INDICATION
     Dosage: 2.5MG PER DAY
     Route: 058
     Dates: start: 20090619, end: 20090731
  2. ROCEPHIN [Suspect]
     Indication: OTITIS MEDIA ACUTE
     Route: 030
     Dates: start: 20090707, end: 20090731
  3. LOVENOX [Suspect]
     Indication: DRUG USE FOR UNKNOWN INDICATION
     Route: 065
     Dates: start: 20090731, end: 20090805
  4. PROTELOS [Concomitant]
     Route: 065
  5. CACIT D3 [Concomitant]
     Route: 065
  6. ZINNAT [Concomitant]
     Indication: OTITIS MEDIA ACUTE
     Route: 065
     Dates: start: 20090619, end: 20090707
  7. OFLOCET [Concomitant]
     Indication: OTITIS MEDIA ACUTE
     Route: 065
     Dates: start: 20090619, end: 20090707
  8. CELESTENE [Concomitant]
     Indication: OTITIS MEDIA ACUTE
     Route: 065
     Dates: start: 20090619, end: 20090707
  9. CIFLOX [Concomitant]
     Route: 065
  10. CLAFORAN [Concomitant]
     Route: 065

REACTIONS (11)
  - ANAEMIA [None]
  - ANURIA [None]
  - ASCITES [None]
  - INCORRECT DRUG ADMINISTRATION DURATION [None]
  - PERIRENAL HAEMATOMA [None]
  - PLEURAL EFFUSION [None]
  - RENAL CORTICAL NECROSIS [None]
  - RENAL FAILURE ACUTE [None]
  - RENAL VASCULITIS [None]
  - SHOCK HAEMORRHAGIC [None]
  - SPLENIC HAEMATOMA [None]
